FAERS Safety Report 7415090-1 (Version None)
Quarter: 2011Q2

REPORT INFORMATION
  Report Type: 
  Country: None (occurrence: None)
  Receive Date: 20110414
  Receipt Date: 20110406
  Transmission Date: 20111010
  Serious: Yes (Hospitalization)
  Sender: FDA-Public Use
  Company Number: FR-ROCHE-751430

PATIENT
  Sex: Male
  Weight: 19.2 kg

DRUGS (26)
  1. FLIXOTIDE [Concomitant]
     Dosage: TDD: 2 BOLUS PER DAY
     Dates: start: 20101102
  2. RIVOTRIL [Concomitant]
     Dosage: TDD:3 DROP/D
     Dates: start: 20101102, end: 20101107
  3. NEURONTIN [Concomitant]
     Dates: start: 20101104, end: 20101112
  4. AMIKLIN [Concomitant]
     Dates: start: 20101223, end: 20101227
  5. VINCRISTINE [Suspect]
     Indication: RHABDOMYOSARCOMA
     Dosage: FORM: 1.5 MG/M2, LAST DOSE PRIOR TO SAE: 05 JANUARY 2011
     Route: 042
     Dates: start: 20101103
  6. DACTINOMYCIN [Suspect]
     Indication: RHABDOMYOSARCOMA
     Dosage: FORM: 1.5 MG/M2, LAST DOSE PRIOR TO SAE: 05 JANUARY 2011
     Route: 042
     Dates: start: 20101103
  7. LAROXYL [Concomitant]
  8. TAZOCILLINE [Concomitant]
     Dates: start: 20110114, end: 20110118
  9. PLITICAN [Concomitant]
     Dosage: TDD: 20-92 MG/D
     Dates: start: 20101103, end: 20101107
  10. XANAX [Concomitant]
     Dates: start: 20101106, end: 20101110
  11. KETAMINE HCL [Concomitant]
  12. PLITICAN [Concomitant]
     Dosage: TDD: 20-92 MG/D
     Dates: start: 20101110, end: 20101110
  13. BEVACIZUMAB [Suspect]
     Indication: RHABDOMYOSARCOMA
     Dosage: DOSAGE FORM: 7.5 MG/KG, LAST DOSE PRIOR TO SAE: 05 JANUARY 2011
     Route: 042
     Dates: start: 20101103
  14. IFOSFAMIDE [Suspect]
     Indication: RHABDOMYOSARCOMA
     Dosage: FORM: 6 G/M2,LAST DOSE PRIOR TO SAE: 16 DEC 2010
     Route: 042
     Dates: start: 20101103
  15. MOVIPREP [Concomitant]
  16. ROCEPHIN [Concomitant]
     Dates: start: 20101223, end: 20110103
  17. PROCTOLOG [Concomitant]
  18. NEUPOGEN [Concomitant]
     Dates: start: 20110113, end: 20110118
  19. ZOPHREN [Concomitant]
     Dates: start: 20101110, end: 20101110
  20. MORPHINE [Concomitant]
     Dates: start: 20101102, end: 20101111
  21. AERIUS [Concomitant]
     Dates: start: 20101102
  22. DUPHALAC [Concomitant]
     Dates: start: 20101106, end: 20101110
  23. BACTRIM [Concomitant]
     Dates: start: 20101103
  24. DOXORUBICIN [Suspect]
     Indication: RHABDOMYOSARCOMA
     Dosage: FORM: 60 MG/M2,LAST DOSE PRIOR TO SAE: 06 JANUARY 2011
     Route: 042
     Dates: start: 20101103
  25. CYCLOPHOSPHAMIDE [Suspect]
     Indication: RHABDOMYOSARCOMA
     Dosage: DOSAGE FORM: 750 MG/M2 LAST DOSE PRIOR TO SAE: 6 JANUARY 2011
     Route: 042
     Dates: start: 20110105
  26. VANCOMYCINE [Concomitant]
     Dates: start: 20101223, end: 20110103

REACTIONS (2)
  - FEBRILE BONE MARROW APLASIA [None]
  - MUCOSAL INFLAMMATION [None]
